FAERS Safety Report 6973407 (Version 9)
Quarter: 2012Q4

REPORT INFORMATION
  Report Type: 
  Country: US (occurrence: US)
  Receive Date: 20090410
  Receipt Date: 20121206
  Transmission Date: 20130627
  Serious: Yes (Hospitalization, Disabling, Other)
  Sender: FDA-Public Use
  Company Number: US-009507513-2008-188696-NL

PATIENT

DRUGS (5)
  1. NUVARING [Suspect]
     Indication: CONTRACEPTION
     Dosage: CONTINUING: NO
     Dates: start: 200311, end: 20041020
  2. NUVARING [Suspect]
     Indication: MENORRHAGIA
  3. IBUPROFEN [Concomitant]
     Indication: HEADACHE
     Dosage: DOSE TEXT: 1 TAB OD PRN, FREQUENCY: PRN
  4. ALLEGRA [Concomitant]
     Dosage: 180
     Dates: start: 20010605
  5. CELEXA [Concomitant]
     Dosage: 20 mg, QD
     Dates: start: 20000619

REACTIONS (20)
  - Pulmonary embolism [Recovered/Resolved with Sequelae]
  - Fibrocystic breast disease [Unknown]
  - Pulmonary infarction [Unknown]
  - Hypophosphataemia [Unknown]
  - Sinus disorder [Unknown]
  - Rhinitis [Unknown]
  - Dyspnoea [Unknown]
  - Nasal obstruction [Unknown]
  - Off label use [Unknown]
  - Carpal tunnel syndrome [Unknown]
  - Upper extremity mass [Unknown]
  - None [Unknown]
  - Carpal tunnel decompression [Unknown]
  - Hysterectomy [Unknown]
  - Presyncope [Unknown]
  - Encephalopathy [Unknown]
  - Liver function test abnormal [Unknown]
  - Adverse drug reaction [Unknown]
  - Deep vein thrombosis [Unknown]
  - Hypercoagulation [Unknown]
